FAERS Safety Report 19870960 (Version 1)
Quarter: 2021Q3

REPORT INFORMATION
  Report Type: Report from Study
  Country: CA (occurrence: CA)
  Receive Date: 20210923
  Receipt Date: 20210923
  Transmission Date: 20211014
  Serious: Yes (Other)
  Sender: FDA-Public Use
  Company Number: CA-BIOGEN-2021BI01050029

PATIENT
  Sex: Female

DRUGS (1)
  1. TYSABRI [Suspect]
     Active Substance: NATALIZUMAB
     Indication: EXPOSURE VIA PARTNER
     Route: 065
     Dates: start: 20181212

REACTIONS (2)
  - Caesarean section [Recovered/Resolved]
  - Paternal exposure before pregnancy [Recovered/Resolved]

NARRATIVE: CASE EVENT DATE: 20210831
